FAERS Safety Report 4832318-2 (Version None)
Quarter: 2005Q4

REPORT INFORMATION
  Report Type: 
  Country: None (occurrence: None)
  Receive Date: 20051116
  Receipt Date: 20051116
  Transmission Date: 20060501
  Serious: Yes (Other)
  Sender: FDA-Public Use
  Company Number: None

PATIENT
  Age: 61 Year
  Sex: Female
  Weight: 113.2 kg

DRUGS (2)
  1. CELEBREX [Suspect]
     Indication: ANALGESIC EFFECT
     Dosage: 200 MG ONE -TIME PRE-OP PO
     Route: 048
     Dates: start: 20051103
  2. GENTAMICIN [Suspect]
     Dosage: 60 MG PRE-OP AND POSTOP IV
     Route: 042
     Dates: start: 20051103

REACTIONS (3)
  - BLOOD CREATININE INCREASED [None]
  - POST PROCEDURAL COMPLICATION [None]
  - URINE OUTPUT DECREASED [None]
